FAERS Safety Report 13382060 (Version 2)
Quarter: 2017Q2

REPORT INFORMATION
  Report Type: Spontaneous
  Country: US (occurrence: US)
  Receive Date: 20170329
  Receipt Date: 20170614
  Transmission Date: 20170830
  Serious: No
  Sender: FDA-Public Use
  Company Number: US-TEVA-753054ACC

PATIENT
  Sex: Female
  Weight: 73.55 kg

DRUGS (1)
  1. PARAGARD T 380A [Suspect]
     Active Substance: COPPER
     Indication: CONTRACEPTION
     Dates: start: 20170221

REACTIONS (3)
  - Vaginal haemorrhage [Not Recovered/Not Resolved]
  - Pelvic discomfort [Not Recovered/Not Resolved]
  - Muscle spasms [Not Recovered/Not Resolved]
